FAERS Safety Report 19306095 (Version 2)
Quarter: 2021Q2

REPORT INFORMATION
  Report Type: Spontaneous
  Country: CH (occurrence: CH)
  Receive Date: 20210526
  Receipt Date: 20210604
  Transmission Date: 20210717
  Serious: Yes (Death, Life-Threatening, Hospitalization, Other)
  Sender: FDA-Public Use
  Company Number: CH-PFIZER INC-2021565292

PATIENT
  Age: 55 Year
  Sex: Female

DRUGS (9)
  1. NIMODIPINE. [Suspect]
     Active Substance: NIMODIPINE
     Dosage: UNK
     Route: 042
  2. NIMODIPINE. [Suspect]
     Active Substance: NIMODIPINE
     Dosage: UNK
     Route: 013
  3. VENLAFAXINE HCL [Suspect]
     Active Substance: VENLAFAXINE HYDROCHLORIDE
     Indication: BIPOLAR DISORDER
     Dosage: UNK
  4. NIMODIPINE. [Suspect]
     Active Substance: NIMODIPINE
     Dosage: 30 MG FREQ:8 H;
  5. BUPRENORPHINE. [Concomitant]
     Active Substance: BUPRENORPHINE
     Indication: DRUG WITHDRAWAL MAINTENANCE THERAPY
     Dosage: UNK
  6. NOREPINEPHRINE. [Suspect]
     Active Substance: NOREPINEPHRINE
     Indication: MEAN ARTERIAL PRESSURE DECREASED
     Dosage: UNK
  7. TUAMINOHEPTANE [Suspect]
     Active Substance: TUAMINOHEPTANE
     Dosage: UNK
     Route: 045
  8. ARIPIPRAZOLE. [Suspect]
     Active Substance: ARIPIPRAZOLE
     Indication: BIPOLAR DISORDER
     Dosage: UNK
  9. NIMODIPINE. [Suspect]
     Active Substance: NIMODIPINE
     Indication: REVERSIBLE CEREBRAL VASOCONSTRICTION SYNDROME
     Dosage: 60 MG Q.4H;

REACTIONS (8)
  - Brain herniation [Fatal]
  - Subarachnoid haemorrhage [Fatal]
  - Ischaemic stroke [Fatal]
  - Haemorrhagic stroke [Fatal]
  - Reversible cerebral vasoconstriction syndrome [Fatal]
  - Condition aggravated [Fatal]
  - Brain oedema [Fatal]
  - Coma [Fatal]
